FAERS Safety Report 8578270-8 (Version None)
Quarter: 2012Q2

REPORT INFORMATION
  Report Type: 
  Country: None (occurrence: None)
  Receive Date: 20120423
  Receipt Date: 20100324
  Transmission Date: 20120825
  Serious: Yes (Other)
  Sender: FDA-Public Use
  Company Number: PHHY2010US07769

PATIENT
  Sex: Female

DRUGS (1)
  1. EXJADE [Suspect]
     Indication: MYELODYSPLASTIC SYNDROME
     Dosage: 1000 MG/DAY, ORAL
     Route: 048
     Dates: start: 20100128

REACTIONS (1)
  - GASTROINTESTINAL HAEMORRHAGE [None]
